FAERS Safety Report 8971269 (Version 1)
Quarter: 2012Q4

REPORT INFORMATION
  Report Type: Report from Study
  Country: NL (occurrence: NL)
  Receive Date: 20121217
  Receipt Date: 20121217
  Transmission Date: 20130627
  Serious: Yes (Disabling)
  Sender: FDA-Public Use
  Company Number: NL-GLAXOSMITHKLINE-B0852909A

PATIENT
  Age: 45 Year
  Sex: Male
  Weight: 65 kg

DRUGS (8)
  1. ZELITREX [Suspect]
     Indication: PROPHYLAXIS
     Route: 048
     Dates: start: 20100721
  2. RITUXIMAB [Suspect]
     Indication: DIFFUSE LARGE B-CELL LYMPHOMA
     Dosage: 680MG per day
     Route: 042
     Dates: start: 20100721
  3. CYCLOPHOSPHAMIDE [Suspect]
     Indication: DIFFUSE LARGE B-CELL LYMPHOMA
     Dosage: 1350MG per day
     Route: 042
     Dates: start: 20100721, end: 20100721
  4. DOXORUBICIN [Suspect]
     Indication: DIFFUSE LARGE B-CELL LYMPHOMA
     Dosage: 90MG per day
     Route: 042
     Dates: start: 20100721, end: 20100721
  5. VINCRISTINE [Suspect]
     Indication: DIFFUSE LARGE B-CELL LYMPHOMA
     Dosage: 2MG per day
     Route: 042
     Dates: start: 20100721, end: 20100721
  6. PREDNISONE [Suspect]
     Indication: DIFFUSE LARGE B-CELL LYMPHOMA
     Dosage: 100MG per day
     Route: 048
     Dates: start: 20100721, end: 20100726
  7. G-CSF [Suspect]
     Indication: DIFFUSE LARGE B-CELL LYMPHOMA
     Dosage: 6MG per day
     Route: 058
     Dates: start: 20100722
  8. CO-TRIMOXAZOLE [Suspect]
     Indication: PROPHYLAXIS
     Route: 048
     Dates: start: 20100721

REACTIONS (1)
  - Soft tissue disorder [Not Recovered/Not Resolved]
